FAERS Safety Report 6336576-7 (Version None)
Quarter: 2009Q3

REPORT INFORMATION
  Report Type: 
  Country: None (occurrence: None)
  Receive Date: 20090831
  Receipt Date: 20090831
  Transmission Date: 20100115
  Serious: Yes (Life-Threatening)
  Sender: FDA-Public Use
  Company Number: None

PATIENT
  Age: 52 Year
  Sex: Male
  Weight: 102.0593 kg

DRUGS (3)
  1. VENTOLIN [Suspect]
     Indication: INFECTION
     Dosage: 3 INHALATIONS ONCE EVERY TWO MIN INHAL
     Route: 055
     Dates: start: 20090823, end: 20090823
  2. VENTOLIN [Suspect]
     Indication: NASOPHARYNGITIS
     Dosage: 3 INHALATIONS ONCE EVERY TWO MIN INHAL
     Route: 055
     Dates: start: 20090823, end: 20090823
  3. VENTOLIN [Suspect]
     Indication: RESPIRATORY DISTRESS
     Dosage: 3 INHALATIONS ONCE EVERY TWO MIN INHAL
     Route: 055
     Dates: start: 20090823, end: 20090823

REACTIONS (6)
  - BACTERIAL INFECTION [None]
  - DRUG EFFECT DECREASED [None]
  - DRUG INEFFECTIVE [None]
  - PRODUCT SUBSTITUTION ISSUE [None]
  - RESPIRATORY DISTRESS [None]
  - VIRAL INFECTION [None]
